FAERS Safety Report 8933437 (Version 2)
Quarter: 2013Q1

REPORT INFORMATION
  Report Type: Report from Study
  Country: US (occurrence: US)
  Receive Date: 20121128
  Receipt Date: 20130123
  Transmission Date: 20140127
  Serious: Yes (Death, Hospitalization)
  Sender: FDA-Public Use
  Company Number: US-ROCHE-1140091

PATIENT
  Age: 71 None
  Sex: Male
  Weight: 79.45 kg

DRUGS (3)
  1. ZELBORAF [Suspect]
     Indication: METASTATIC MALIGNANT MELANOMA
     Dosage: 720 MG EVERY AM AND 480 MG EVERY PM
     Route: 048
     Dates: start: 201204, end: 201208
  2. ZELBORAF [Suspect]
     Route: 048
     Dates: start: 201208
  3. ZELBORAF [Suspect]
     Route: 048
     Dates: start: 20121122, end: 201212

REACTIONS (8)
  - Decreased appetite [Not Recovered/Not Resolved]
  - Abdominal distension [Not Recovered/Not Resolved]
  - Dysgeusia [Not Recovered/Not Resolved]
  - Weight decreased [Not Recovered/Not Resolved]
  - Convulsion [Recovered/Resolved]
  - Fatigue [Not Recovered/Not Resolved]
  - Skin neoplasm excision [Unknown]
  - Metastases to central nervous system [Fatal]
